FAERS Safety Report 4668284-2 (Version None)
Quarter: 2005Q2

REPORT INFORMATION
  Report Type: 
  Country: None (occurrence: None)
  Receive Date: 20050523
  Receipt Date: 20050209
  Transmission Date: 20051028
  Serious: Yes (Hospitalization, Other)
  Sender: FDA-Public Use
  Company Number: PHEH2005US01890

PATIENT
  Age: 56 Year
  Sex: Male
  Weight: 85 kg

DRUGS (8)
  1. ZOMETA [Suspect]
     Indication: MULTIPLE MYELOMA
     Dosage: 4 MG QMO
     Route: 042
     Dates: start: 20020610, end: 20041001
  2. INFLUENZA VACCINE [Concomitant]
     Dates: start: 20041201
  3. AREDIA [Suspect]
     Indication: MULTIPLE MYELOMA
     Dosage: 90MG Q4WK
     Dates: start: 20020415, end: 20020513
  4. VINCRISTINE [Concomitant]
     Dates: start: 20010101
  5. ADRIAMYCIN PFS [Concomitant]
     Dates: start: 20010101
  6. DECADRON                                /CAN/ [Concomitant]
     Dates: start: 20010101
  7. DECADRON                                /CAN/ [Concomitant]
     Dates: start: 20040101
  8. THALIDOMIDE [Concomitant]

REACTIONS (14)
  - ALVEOLOPLASTY [None]
  - BONE DEBRIDEMENT [None]
  - BONE DISORDER [None]
  - BONE OPERATION [None]
  - GINGIVAL SWELLING [None]
  - INFECTION [None]
  - JAW DISORDER [None]
  - OSTEOMYELITIS [None]
  - OSTEONECROSIS [None]
  - PRIMARY SEQUESTRUM [None]
  - SOFT TISSUE INFLAMMATION [None]
  - TENDERNESS [None]
  - TOOTH ABSCESS [None]
  - TOOTH EXTRACTION [None]
